FAERS Safety Report 6656263-5 (Version None)
Quarter: 2010Q1

REPORT INFORMATION
  Report Type: 
  Country: None (occurrence: None)
  Receive Date: 20100326
  Receipt Date: 20100326
  Transmission Date: 20100710
  Serious: Yes (Other)
  Sender: FDA-Public Use
  Company Number: None

PATIENT
  Sex: Female
  Weight: 5.65 kg

DRUGS (1)
  1. BOSENTAN 62.5 MG TAB ACTELION [Suspect]
     Indication: PULMONARY HYPERTENSION
     Dosage: 10 MG EVERY 12 HOURS PO
     Route: 048
     Dates: start: 20091217, end: 20100317

REACTIONS (2)
  - ALANINE AMINOTRANSFERASE INCREASED [None]
  - ASPARTATE AMINOTRANSFERASE INCREASED [None]
